FAERS Safety Report 7001716-3 (Version None)
Quarter: 2010Q3

REPORT INFORMATION
  Report Type: 
  Country: None (occurrence: None)
  Receive Date: 20100920
  Receipt Date: 20100916
  Transmission Date: 20110219
  Serious: Yes (Hospitalization, Other)
  Sender: FDA-Public Use
  Company Number: HQWYE031915DEC05

PATIENT
  Sex: Female

DRUGS (5)
  1. PREMARIN [Suspect]
  2. MEDROXYPROGESTERONE [Suspect]
  3. PREMPHASE 14/14 [Suspect]
  4. PROVERA [Suspect]
  5. ESTRADIOL [Suspect]

REACTIONS (1)
  - BREAST CANCER [None]
